FAERS Safety Report 22661135 (Version 1)
Quarter: 2023Q2

REPORT INFORMATION
  Report Type: Spontaneous
  Country: US (occurrence: US)
  Receive Date: 20230630
  Receipt Date: 20230630
  Transmission Date: 20230721
  Serious: Yes (Other)
  Sender: FDA-Public Use
  Company Number: US-PFIZER INC-PV202300114202

PATIENT

DRUGS (2)
  1. OXBRYTA [Suspect]
     Active Substance: VOXELOTOR
     Dosage: UNK
  2. JADENU [Suspect]
     Active Substance: DEFERASIROX
     Dosage: UNK

REACTIONS (1)
  - Drug ineffective [Unknown]
